FAERS Safety Report 19444652 (Version 1)
Quarter: 2021Q2

REPORT INFORMATION
  Report Type: Spontaneous
  Country: CA (occurrence: CA)
  Receive Date: 20210621
  Receipt Date: 20210621
  Transmission Date: 20210717
  Serious: Yes (Other)
  Sender: FDA-Public Use
  Company Number: CA-SA-2021SA199473

PATIENT
  Age: 40 Year
  Sex: Female

DRUGS (11)
  1. ALEMTUZUMAB [Suspect]
     Active Substance: ALEMTUZUMAB
     Indication: RELAPSING-REMITTING MULTIPLE SCLEROSIS
     Dosage: 12 MG, QD
     Route: 041
  2. ACYCLOVIR [ACICLOVIR] [Concomitant]
     Active Substance: ACYCLOVIR
     Indication: PREMEDICATION
     Dosage: 2 DF, QD
     Route: 048
  3. NORMAL SALINE [Concomitant]
     Active Substance: SODIUM CHLORIDE
     Indication: PREMEDICATION
     Dosage: 200 DF
     Route: 042
  4. ACETAMINOPHEN. [Concomitant]
     Active Substance: ACETAMINOPHEN
     Indication: PREMEDICATION
     Route: 048
  5. CALCIUM [Concomitant]
     Active Substance: CALCIUM
     Dosage: UNK, QD
     Route: 048
  6. CETIRIZINE HYDROCHLORIDE. [Concomitant]
     Active Substance: CETIRIZINE HYDROCHLORIDE
     Indication: PREMEDICATION
     Dosage: 2 DF, QD
     Route: 048
  7. RANITIDINE. [Concomitant]
     Active Substance: RANITIDINE
     Indication: PREMEDICATION
     Dosage: 150 MG
     Route: 048
  8. METHYLPREDNISOLONE SODIUM SUCCINATE. [Suspect]
     Active Substance: METHYLPREDNISOLONE SODIUM SUCCINATE
     Indication: PRODUCT USED FOR UNKNOWN INDICATION
     Dosage: 1 G
     Route: 042
  9. GRAVOL [Concomitant]
     Active Substance: DIMENHYDRINATE
     Indication: PREMEDICATION
     Dosage: 50 MG
     Route: 048
  10. VITAMIN D NOS [Concomitant]
     Active Substance: VITAMIN D NOS
     Indication: PREMEDICATION
     Dosage: 1 DF, QD
  11. BENADRYL [Concomitant]
     Active Substance: DIPHENHYDRAMINE HYDROCHLORIDE
     Dosage: 50 MG
     Route: 048

REACTIONS (17)
  - Feeling abnormal [Recovered/Resolved]
  - Gastrointestinal pain [Recovered/Resolved]
  - Headache [Recovered/Resolved]
  - Hypertension [Recovered/Resolved]
  - Pain in extremity [Recovered/Resolved]
  - Poor quality sleep [Recovered/Resolved]
  - Fatigue [Recovered/Resolved]
  - Infusion site extravasation [Recovered/Resolved]
  - Flushing [Recovered/Resolved]
  - Pyrexia [Recovered/Resolved]
  - Bradycardia [Recovered/Resolved]
  - Infusion site pain [Recovered/Resolved]
  - Arthralgia [Recovered/Resolved]
  - Nasopharyngitis [Recovered/Resolved]
  - Dry mouth [Recovered/Resolved]
  - Dysgeusia [Recovered/Resolved]
  - Chest discomfort [Recovered/Resolved]
